FAERS Safety Report 6149446-4 (Version None)
Quarter: 2009Q2

REPORT INFORMATION
  Report Type: 
  Country: None (occurrence: None)
  Receive Date: 20090406
  Receipt Date: 20090406
  Transmission Date: 20091009
  Serious: Yes (Life-Threatening, Other)
  Sender: FDA-Public Use
  Company Number: None

PATIENT
  Age: 75 Year
  Sex: Female
  Weight: 56.6996 kg

DRUGS (2)
  1. REGLAN [Suspect]
     Indication: GASTRITIS
     Dosage: 10 MG 2 DAILY PO
     Route: 048
     Dates: start: 20090311, end: 20090321
  2. REGLAN [Suspect]
     Indication: GASTROOESOPHAGEAL REFLUX DISEASE
     Dosage: 10 MG 2 DAILY PO
     Route: 048
     Dates: start: 20090311, end: 20090321

REACTIONS (12)
  - AGITATION [None]
  - CONFUSIONAL STATE [None]
  - DRUG INEFFECTIVE [None]
  - DYSKINESIA [None]
  - EYE MOVEMENT DISORDER [None]
  - LIP DISORDER [None]
  - MANIA [None]
  - MUSCLE CONTRACTIONS INVOLUNTARY [None]
  - POISONING [None]
  - RESTLESSNESS [None]
  - TACHYPHRENIA [None]
  - TREMOR [None]
